FAERS Safety Report 19974526 (Version 9)
Quarter: 2022Q4

REPORT INFORMATION
  Report Type: Spontaneous
  Country: US (occurrence: US)
  Receive Date: 20211020
  Receipt Date: 20221028
  Transmission Date: 20230112
  Serious: No
  Sender: FDA-Public Use
  Company Number: US-PFIZER INC-202100938472

PATIENT
  Age: 70 Year
  Sex: Female

DRUGS (3)
  1. IBRANCE [Suspect]
     Active Substance: PALBOCICLIB
     Indication: Breast cancer female
     Dosage: 100 MG
  2. IBRANCE [Suspect]
     Active Substance: PALBOCICLIB
     Dosage: DAILY FOR 14 DAYS FOLLOWED BY 7 DAYS OFF
     Route: 048
  3. IBRANCE [Suspect]
     Active Substance: PALBOCICLIB
     Dosage: 1 TABLET BY MOUTH X 2 WEEKS WITH 1 WEEK OFF
     Route: 048

REACTIONS (7)
  - Malaise [Unknown]
  - Fatigue [Unknown]
  - White blood cell count decreased [Unknown]
  - Off label use [Unknown]
  - Product use issue [Unknown]
  - Product dose omission issue [Unknown]
  - Product prescribing error [Unknown]
